FAERS Safety Report 5324102-0 (Version None)
Quarter: 2007Q2

REPORT INFORMATION
  Report Type: 
  Country: None (occurrence: None)
  Receive Date: 20070514
  Receipt Date: 20060425
  Transmission Date: 20071010
  Serious: No
  Sender: FDA-Public Use
  Company Number: A0603249A

PATIENT
  Age: 57 Year
  Sex: Female

DRUGS (10)
  1. NABUMETONE [Suspect]
     Indication: RHEUMATOID ARTHRITIS
     Dosage: 2000MG PER DAY
     Route: 048
     Dates: start: 20050101
  2. PROVENTIL INHALER [Concomitant]
  3. ALBUTEROL [Concomitant]
     Route: 055
  4. BECONASE [Concomitant]
  5. ADVAIR DISKUS 100/50 [Concomitant]
  6. LIPITOR [Concomitant]
  7. ALLEGRA [Concomitant]
  8. PREVACID [Concomitant]
  9. ASPIRIN [Concomitant]
  10. FOLIC ACID [Concomitant]

REACTIONS (9)
  - ABASIA [None]
  - ABDOMINAL PAIN UPPER [None]
  - CHEST PAIN [None]
  - DRUG INEFFECTIVE [None]
  - DYSPEPSIA [None]
  - MUSCULOSKELETAL STIFFNESS [None]
  - NAUSEA [None]
  - PRURITUS GENERALISED [None]
  - RASH [None]
